FAERS Safety Report 19887171 (Version 1)
Quarter: 2021Q3

REPORT INFORMATION
  Report Type: Spontaneous
  Country: GB (occurrence: GB)
  Receive Date: 20210927
  Receipt Date: 20210927
  Transmission Date: 20211014
  Serious: Yes (Death, Life-Threatening, Hospitalization, Other)
  Sender: FDA-Public Use
  Company Number: GB-VELOXIS PHARMACEUTICALS-2021VELGB-000671

PATIENT
  Age: 24 Year
  Sex: Male

DRUGS (1)
  1. TACROLIMUS. [Suspect]
     Active Substance: TACROLIMUS
     Indication: IMMUNOSUPPRESSANT DRUG THERAPY
     Dosage: UNK

REACTIONS (10)
  - Septic embolus [Fatal]
  - Disseminated aspergillosis [Fatal]
  - Renal infarct [Fatal]
  - Cerebral infarction [Fatal]
  - Myocardiac abscess [Fatal]
  - Aspergillus infection [Fatal]
  - Brain abscess [Fatal]
  - Carditis [Fatal]
  - Splenic infarction [Fatal]
  - Lung abscess [Fatal]
